FAERS Safety Report 6073206-6 (Version None)
Quarter: 2009Q1

REPORT INFORMATION
  Report Type: 
  Country: None (occurrence: None)
  Receive Date: 20090205
  Receipt Date: 20090129
  Transmission Date: 20090719
  Serious: Yes (Death)
  Sender: FDA-Public Use
  Company Number: 2008JP005661

PATIENT
  Age: 5 Year
  Sex: Male
  Weight: 18.3 kg

DRUGS (19)
  1. FUNGUARD(MICAFUNGIN INJECTION) FUNGUARD(MICAFUNGIN) INJECTION [Suspect]
     Indication: FEBRILE NEUTROPENIA
     Dosage: 100 MG, UID/QD, IV DRIP
     Route: 041
     Dates: start: 20080725, end: 20080927
  2. VANCOMYCIN HYDROCHLORIDE [Concomitant]
  3. MINOPEN (MINOCYCLINE HYDROCHLORIDE) [Concomitant]
  4. FIRSTCIN (CEOZOPRAN HYDROCHLORIDE) [Concomitant]
  5. ZYVOX [Concomitant]
  6. ACYCLOVIR [Concomitant]
  7. PHENOBAL (PHENOBARBITAL SODIUM) [Concomitant]
  8. LASIX [Concomitant]
  9. ALDACTONE A FINE GRANULE [Concomitant]
  10. LEVOTHYROXINE SODIUM [Concomitant]
  11. DECADRON (DEXAMETHASONE PHOSPHATE) [Concomitant]
  12. NICARDIPINE HYDROCHLORIDE [Concomitant]
  13. ROPION (FLURBIPROFEN AXETIL) [Concomitant]
  14. IMMUNE GLOBULIN INTRAVENOUS (HUMAN) [Concomitant]
  15. GLYCEOL (SODIUM CHLORIDE, GLYCEROL) [Concomitant]
  16. ATARAX [Concomitant]
  17. PREDONINE (PREDNISOLONE SODIUM SUCCINATE) [Concomitant]
  18. PIPERACILLIN SODIUM AND TAZOBACTAM SODIUM [Concomitant]
  19. CEFTAZIDIME [Concomitant]

REACTIONS (10)
  - CARDIAC ARREST [None]
  - CATHETER SITE ERYTHEMA [None]
  - CATHETER SITE SWELLING [None]
  - CONVULSION [None]
  - COUGH [None]
  - DEPRESSED LEVEL OF CONSCIOUSNESS [None]
  - DRUG INEFFECTIVE [None]
  - DYSPNOEA [None]
  - RASH PAPULAR [None]
  - TRICHOSPORON INFECTION [None]
